FAERS Safety Report 7770925-8 (Version None)
Quarter: 2011Q3

REPORT INFORMATION
  Report Type: 
  Country: None (occurrence: None)
  Receive Date: 20110922
  Receipt Date: 20101001
  Transmission Date: 20111222
  Serious: No
  Sender: FDA-Public Use
  Company Number: US-ASTRAZENECA-2010SE46474

PATIENT
  Sex: Female
  Weight: 59 kg

DRUGS (3)
  1. SEROQUEL XR [Suspect]
     Indication: HALLUCINATION, AUDITORY
     Route: 048
  2. SEROQUEL XR [Suspect]
     Indication: HALLUCINATION, VISUAL
     Route: 048
  3. SEROQUEL XR [Suspect]
     Indication: DEPRESSION
     Route: 048

REACTIONS (1)
  - TYMPANIC MEMBRANE DISORDER [None]
